FAERS Safety Report 24533913 (Version 4)
Quarter: 2025Q1

REPORT INFORMATION
  Report Type: Report from Study
  Country: US (occurrence: US)
  Receive Date: 20241022
  Receipt Date: 20250103
  Transmission Date: 20250409
  Serious: No
  Sender: TAKEDA
  Company Number: US-TAKEDA-2024TUS095742

PATIENT
  Age: 56 Year
  Sex: Female

DRUGS (4)
  1. FRUQUINTINIB [Suspect]
     Active Substance: FRUQUINTINIB
     Indication: Rectal cancer
  2. FRUQUINTINIB [Suspect]
     Active Substance: FRUQUINTINIB
  3. FRUQUINTINIB [Suspect]
     Active Substance: FRUQUINTINIB
  4. FRUQUINTINIB [Suspect]
     Active Substance: FRUQUINTINIB

REACTIONS (11)
  - Fungal skin infection [Unknown]
  - Depressed mood [Unknown]
  - Emotional disorder [Unknown]
  - Malaise [Unknown]
  - Blister [Unknown]
  - Scab [Unknown]
  - Confusional state [Unknown]
  - Pain [Unknown]
  - Oral pain [Unknown]
  - Tongue ulceration [Unknown]
  - Stomatitis [Unknown]

NARRATIVE: CASE EVENT DATE: 20240901
